FAERS Safety Report 5355919-4 (Version None)
Quarter: 2007Q2

REPORT INFORMATION
  Report Type: 
  Country: None (occurrence: None)
  Receive Date: 20070531
  Receipt Date: 20070313
  Transmission Date: 20071010
  Serious: Yes (Hospitalization, Other)
  Sender: FDA-Public Use
  Company Number: US200703003624

PATIENT
  Age: 22 Year
  Sex: Male

DRUGS (2)
  1. ZYPREXA [Suspect]
     Dosage: SEEI IMAGE
  2. LITHIUM CARBONATE [Concomitant]

REACTIONS (2)
  - HEADACHE [None]
  - NEUROLEPTIC MALIGNANT SYNDROME [None]
